FAERS Safety Report 5831563-7 (Version None)
Quarter: 2008Q3

REPORT INFORMATION
  Report Type: 
  Country: None (occurrence: None)
  Receive Date: 20080801
  Receipt Date: 20080722
  Transmission Date: 20090109
  Serious: Yes (Other)
  Sender: FDA-Public Use
  Company Number: JP-PFIZER INC-2008062033

PATIENT
  Age: 11 Year
  Sex: Female

DRUGS (2)
  1. SILDENAFIL CITRATE [Suspect]
     Dosage: DAILY DOSE:42.5MG
     Route: 048
  2. BOSENTAN [Suspect]
     Dosage: DAILY DOSE:31.25MG
     Route: 048

REACTIONS (1)
  - CARDIAC FAILURE [None]
